FAERS Safety Report 15266897 (Version 2)
Quarter: 2018Q4

REPORT INFORMATION
  Report Type: Spontaneous
  Country: US (occurrence: US)
  Receive Date: 20180810
  Receipt Date: 20181003
  Transmission Date: 20190204
  Serious: Yes (Hospitalization, Other)
  Sender: FDA-Public Use
  Company Number: US-PRINSTON PHARMACEUTICAL INC.-2018PRN00706

PATIENT
  Age: 60 Year
  Sex: Male
  Weight: 90.7 kg

DRUGS (4)
  1. CARVEDILOL. [Concomitant]
     Active Substance: CARVEDILOL
  2. HYDRALAZINE [Concomitant]
     Active Substance: HYDRALAZINE HYDROCHLORIDE
  3. VALSARTAN. [Suspect]
     Active Substance: VALSARTAN
     Indication: HYPERTENSION
     Dosage: 320 MG, 2X/DAY
     Dates: start: 2012, end: 201807
  4. VALSARTAN. [Suspect]
     Active Substance: VALSARTAN
     Dosage: 320 MG, 2X/DAY
     Route: 048
     Dates: start: 2000

REACTIONS (4)
  - Procedural complication [Unknown]
  - Hepatic cancer [Not Recovered/Not Resolved]
  - Hepatic cirrhosis [Unknown]
  - Suture rupture [Unknown]

NARRATIVE: CASE EVENT DATE: 201710
